FAERS Safety Report 16459063 (Version 1)
Quarter: 2019Q2

REPORT INFORMATION
  Report Type: Spontaneous
  Country: JP (occurrence: JP)
  Receive Date: 20190620
  Receipt Date: 20190620
  Transmission Date: 20190711
  Serious: Yes (Other)
  Sender: FDA-Public Use
  Company Number: JP-TEVA-2019-JP-1064901

PATIENT
  Age: 75 Year
  Sex: Male
  Weight: 51 kg

DRUGS (1)
  1. PREDNISOLONE. [Suspect]
     Active Substance: PREDNISOLONE
     Indication: RENAL DISORDER
     Dosage: 30MG DAILY
     Route: 065

REACTIONS (1)
  - Substance-induced psychotic disorder [Unknown]
